FAERS Safety Report 17298317 (Version 3)
Quarter: 2020Q1

REPORT INFORMATION
  Report Type: Spontaneous
  Country: US (occurrence: US)
  Receive Date: 20200121
  Receipt Date: 20200227
  Transmission Date: 20200409
  Serious: Yes (Other)
  Sender: FDA-Public Use
  Company Number: US-BAYER-2020-011002

PATIENT
  Age: 20 Year
  Sex: Female
  Weight: 69.39 kg

DRUGS (5)
  1. PROAIR HFA [Concomitant]
     Active Substance: ALBUTEROL SULFATE
     Dosage: UNK
  2. KYLEENA [Suspect]
     Active Substance: LEVONORGESTREL
     Indication: CONTRACEPTION
     Dosage: 17.5 MCG/24HR, CONT
     Route: 015
     Dates: start: 20190821, end: 20200115
  3. WELLBUTRIN [Concomitant]
     Active Substance: BUPROPION HYDROCHLORIDE
  4. EPIPEN [Concomitant]
     Active Substance: EPINEPHRINE
  5. NAPROXEN. [Concomitant]
     Active Substance: NAPROXEN
     Dosage: 220 MG
     Route: 048

REACTIONS (2)
  - Embedded device [Recovered/Resolved]
  - Genital haemorrhage [None]

NARRATIVE: CASE EVENT DATE: 20200110
